FAERS Safety Report 22037556 (Version 3)
Quarter: 2023Q2

REPORT INFORMATION
  Report Type: Spontaneous
  Country: DE (occurrence: DE)
  Receive Date: 20230227
  Receipt Date: 20230526
  Transmission Date: 20230721
  Serious: Yes (Hospitalization, Other)
  Sender: FDA-Public Use
  Company Number: DE-002147023-NVSC2022DE264376

PATIENT
  Age: 15 Year

DRUGS (11)
  1. ARIPIPRAZOLE [Interacting]
     Active Substance: ARIPIPRAZOLE
     Indication: Autism spectrum disorder
     Dosage: UNK
     Route: 065
  2. ARIPIPRAZOLE [Interacting]
     Active Substance: ARIPIPRAZOLE
     Indication: Antipsychotic therapy
  3. ARIPIPRAZOLE [Interacting]
     Active Substance: ARIPIPRAZOLE
     Indication: Intellectual disability
  4. RISPERIDONE [Interacting]
     Active Substance: RISPERIDONE
     Indication: Adjustment disorder
     Dosage: UNK
     Route: 065
  5. MELPERONE [Interacting]
     Active Substance: MELPERONE
     Indication: Adjustment disorder
     Dosage: UNK
     Route: 065
  6. PIPAMPERONE [Interacting]
     Active Substance: PIPAMPERONE
     Indication: Antipsychotic therapy
     Dosage: UNK
     Route: 065
  7. PIPAMPERONE [Interacting]
     Active Substance: PIPAMPERONE
     Indication: Intellectual disability
  8. PIPAMPERONE [Interacting]
     Active Substance: PIPAMPERONE
     Indication: Autism spectrum disorder
  9. ZUCLOPENTHIXOL [Interacting]
     Active Substance: ZUCLOPENTHIXOL
     Indication: Antipsychotic therapy
     Dosage: UNK
     Route: 065
  10. ZUCLOPENTHIXOL [Interacting]
     Active Substance: ZUCLOPENTHIXOL
     Indication: Autism spectrum disorder
  11. ZUCLOPENTHIXOL [Interacting]
     Active Substance: ZUCLOPENTHIXOL
     Indication: Intellectual disability

REACTIONS (12)
  - Electrocardiogram QT prolonged [Unknown]
  - Tongue spasm [Unknown]
  - Akinesia [Unknown]
  - Gait disturbance [Unknown]
  - Tremor [Unknown]
  - Myoclonus [Unknown]
  - Muscle spasms [Unknown]
  - Chills [Unknown]
  - Drug interaction [Unknown]
  - Medication error [Unknown]
  - Off label use [Unknown]
  - Product use in unapproved indication [Unknown]
